FAERS Safety Report 9039031 (Version 1)
Quarter: 2013Q1

REPORT INFORMATION
  Report Type: Report from Study
  Country: US (occurrence: US)
  Receive Date: 20130129
  Receipt Date: 20130129
  Transmission Date: 20140127
  Serious: No
  Sender: FDA-Public Use
  Company Number: US-ABBOTT-12P-163-0917878-00

PATIENT
  Sex: Male
  Weight: 113.5 kg

DRUGS (12)
  1. HUMIRA 40 MG/0.8 ML PEN [Suspect]
     Indication: PSORIATIC ARTHROPATHY
     Dates: start: 20120202, end: 201203
  2. HUMALOG [Concomitant]
     Indication: DIABETES MELLITUS
  3. LANTUS [Concomitant]
     Indication: DIABETES MELLITUS
  4. ALLOPURINOL [Concomitant]
     Indication: GOUT
  5. PLAVIX [Concomitant]
     Indication: ANTICOAGULANT THERAPY
  6. ASPIRIN [Concomitant]
     Indication: CARDIOVASCULAR EVENT PROPHYLAXIS
  7. METFORMIN [Concomitant]
     Indication: DIABETES MELLITUS
  8. TOPROL [Concomitant]
     Indication: HYPERTENSION
  9. LEVOTHYROXINE [Concomitant]
     Indication: HYPOTHYROIDISM
  10. METHOTREXATE [Concomitant]
     Indication: PSORIATIC ARTHROPATHY
  11. LIPITOR [Concomitant]
     Indication: BLOOD CHOLESTEROL INCREASED
  12. FLUOXETINE [Concomitant]
     Indication: DEPRESSION

REACTIONS (2)
  - Movement disorder [Not Recovered/Not Resolved]
  - Pain [Not Recovered/Not Resolved]
